FAERS Safety Report 20608152 (Version 2)
Quarter: 2022Q2

REPORT INFORMATION
  Report Type: Spontaneous
  Country: US (occurrence: US)
  Receive Date: 20220317
  Receipt Date: 20220429
  Transmission Date: 20220721
  Serious: Yes (Other)
  Sender: FDA-Public Use
  Company Number: US-SA-SAC20220316000522

PATIENT
  Age: 61 Year
  Sex: Male

DRUGS (8)
  1. DUPIXENT [Suspect]
     Active Substance: DUPILUMAB
     Indication: Dermatitis atopic
     Dosage: 300 MG, QOW
     Route: 058
     Dates: start: 201803
  2. TREMFYA [Concomitant]
     Active Substance: GUSELKUMAB
     Dosage: UNK
  3. CLOBETASOL PROPIONATE [Concomitant]
     Active Substance: CLOBETASOL PROPIONATE
     Dosage: UNK
  4. MELOXICAM [Concomitant]
     Active Substance: MELOXICAM
     Dosage: UNK
  5. CLOBETASOL [Concomitant]
     Active Substance: CLOBETASOL
  6. ASPIRIN [Concomitant]
     Active Substance: ASPIRIN
  7. OXSORALEN [Concomitant]
     Active Substance: METHOXSALEN
  8. VITAMINS NOS [Concomitant]
     Active Substance: VITAMINS

REACTIONS (13)
  - Psoriatic arthropathy [Unknown]
  - Pain [Unknown]
  - Nasal congestion [Unknown]
  - Limb injury [Recovered/Resolved]
  - Incisional drainage [Recovered/Resolved]
  - Peripheral swelling [Recovered/Resolved]
  - Grip strength decreased [Unknown]
  - Loss of personal independence in daily activities [Unknown]
  - Pruritus [Unknown]
  - Oropharyngeal pain [Recovered/Resolved]
  - Therapy cessation [Unknown]
  - Arthralgia [Recovered/Resolved]
  - Injection site reaction [Recovered/Resolved]

NARRATIVE: CASE EVENT DATE: 20210101
